FAERS Safety Report 9027933 (Version 1)
Quarter: 2013Q1

REPORT INFORMATION
  Report Type: Spontaneous
  Country: GB (occurrence: GB)
  Receive Date: 20130123
  Receipt Date: 20130123
  Transmission Date: 20140127
  Serious: Yes (Life-Threatening)
  Sender: FDA-Public Use
  Company Number: GB-ABBOTT-13P-167-1038617-00

PATIENT
  Age: 63 Year
  Sex: Female
  Weight: 80 kg

DRUGS (5)
  1. CLARITHROMYCIN [Suspect]
     Indication: SEPSIS
     Route: 048
     Dates: start: 20121220, end: 20121220
  2. METOCLOPRAMIDE [Suspect]
     Indication: NAUSEA
     Route: 048
     Dates: start: 20121220, end: 20121220
  3. SUCCINYLATED ACINETOBACTER GLUTAMINASE-ASPARAGINASE (SAGA) [Suspect]
     Indication: HYPOTENSION
     Route: 042
     Dates: start: 20121220, end: 20121220
  4. MEROPENEM [Concomitant]
     Indication: PRODUCT USED FOR UNKNOWN INDICATION
     Dosage: PARENT ROUTE OF ADMIN: BUCCAL
     Route: 042
     Dates: start: 201111
  5. GENTAMICIN [Concomitant]
     Indication: PRODUCT USED FOR UNKNOWN INDICATION
     Route: 042
     Dates: start: 201211

REACTIONS (8)
  - Erythema [Recovered/Resolved]
  - Oxygen saturation decreased [Recovered/Resolved]
  - Stridor [Recovered/Resolved]
  - Hypotension [Recovered/Resolved]
  - Swelling face [Recovered/Resolved]
  - Wheezing [Recovered/Resolved]
  - Respiratory disorder [Unknown]
  - Breath sounds absent [Unknown]
